FAERS Safety Report 21493812 (Version 1)
Quarter: 2022Q4

REPORT INFORMATION
  Report Type: Spontaneous
  Country: US (occurrence: US)
  Receive Date: 20221021
  Receipt Date: 20221021
  Transmission Date: 20230113
  Serious: No
  Sender: FDA-Public Use
  Company Number: US-VERTEX PHARMACEUTICALS-2022-015618

PATIENT
  Sex: Female

DRUGS (1)
  1. TRIKAFTA [Suspect]
     Active Substance: ELEXACAFTOR\IVACAFTOR\TEZACAFTOR
     Indication: Cystic fibrosis
     Dosage: (ELEXA/TEZA/IVA; IVA), UNKNOWN FREQUENCY
     Route: 048
     Dates: end: 2022

REACTIONS (3)
  - Back pain [Unknown]
  - Product dose omission issue [Unknown]
  - Abdominal pain upper [Unknown]
